FAERS Safety Report 7064253-6 (Version None)
Quarter: 2010Q4

REPORT INFORMATION
  Report Type: 
  Country: None (occurrence: None)
  Receive Date: 20101022
  Receipt Date: 20100916
  Transmission Date: 20110411
  Serious: No
  Sender: FDA-Public Use
  Company Number: DL2010-0767

PATIENT
  Age: 18 Year
  Sex: Female

DRUGS (4)
  1. MIFEPRISTONE (MIFEPREX) [Suspect]
     Indication: ABORTION INDUCED
     Dosage: 200 MG, ORAL
     Route: 048
     Dates: start: 20100316
  2. MISOPROSTOL [Suspect]
     Dosage: 800 MCG, BUCCAL
     Route: 002
     Dates: start: 20100317
  3. MISOPROSTOL [Suspect]
     Dosage: 800 MCG, ORAL
     Route: 048
     Dates: start: 20100405
  4. DOXYCYCLINE [Concomitant]

REACTIONS (1)
  - MENORRHAGIA [None]
